FAERS Safety Report 15984520 (Version 1)
Quarter: 2019Q1

REPORT INFORMATION
  Report Type: Spontaneous
  Country: US (occurrence: US)
  Receive Date: 20190219
  Receipt Date: 20190219
  Transmission Date: 20190418
  Serious: Yes (Hospitalization)
  Sender: FDA-Public Use
  Company Number: None

PATIENT
  Age: 24 Year
  Sex: Male

DRUGS (1)
  1. TESTOSTERONE CYP [Suspect]
     Active Substance: TESTOSTERONE CYPIONATE
     Indication: TESTICULAR DISORDER
     Dosage: ?          OTHER FREQUENCY:EVERY 2 WEEKS;?
     Route: 030

REACTIONS (1)
  - Hospitalisation [None]

NARRATIVE: CASE EVENT DATE: 20190201
